FAERS Safety Report 5572271-X (Version None)
Quarter: 2007Q4

REPORT INFORMATION
  Report Type: 
  Country: None (occurrence: None)
  Receive Date: 20071221
  Receipt Date: 20071212
  Transmission Date: 20080405
  Serious: Yes (Hospitalization, Other)
  Sender: FDA-Public Use
  Company Number: FR-PFIZER INC-2007104749

PATIENT
  Sex: Female

DRUGS (1)
  1. LYRICA [Suspect]
     Indication: EPICONDYLITIS

REACTIONS (4)
  - INTENTIONAL OVERDOSE [None]
  - PARAESTHESIA ORAL [None]
  - SUICIDAL BEHAVIOUR [None]
  - TONGUE DISCOLOURATION [None]
